FAERS Safety Report 7460064-8 (Version None)
Quarter: 2011Q2

REPORT INFORMATION
  Report Type: 
  Country: None (occurrence: None)
  Receive Date: 20110505
  Receipt Date: 20110430
  Transmission Date: 20111010
  Serious: Yes (Other)
  Sender: FDA-Public Use
  Company Number: PHHO2010BE07224

PATIENT
  Sex: Male
  Weight: 114 kg

DRUGS (3)
  1. ACZ885 [Suspect]
     Indication: GOUT
     Dosage: 300 MG
     Route: 048
     Dates: start: 20081222
  2. ACZ885 [Suspect]
     Dosage: UNK
     Route: 048
     Dates: start: 20090510
  3. TAMSULOSIN HCL [Concomitant]
     Indication: PROSTATISM

REACTIONS (1)
  - PROSTATE CANCER [None]
